FAERS Safety Report 10402174 (Version 1)
Quarter: 2014Q3

REPORT INFORMATION
  Report Type: Spontaneous
  Country: GB (occurrence: None)
  Receive Date: 20140819
  Receipt Date: 20140819
  Transmission Date: 20150326
  Serious: Yes (Life-Threatening, Hospitalization)
  Sender: FDA-Public Use
  Company Number: AUR-APL-2014-08641

PATIENT
  Age: 72 Year
  Sex: Male
  Weight: 85 kg

DRUGS (10)
  1. LANSOPRAZOLE (LANSOPRAZOLE) [Concomitant]
     Active Substance: LANSOPRAZOLE
  2. CLOPIDOGREL [Suspect]
     Active Substance: CLOPIDOGREL BISULFATE
     Indication: PRODUCT USED FOR UNKNOWN INDICATION
     Route: 048
     Dates: start: 20091013, end: 20110214
  3. SALBUTAMOL (SALBUTAMOL) [Concomitant]
     Active Substance: ALBUTEROL
  4. RAMIPRIL (RAMIPRIL) [Concomitant]
     Active Substance: RAMIPRIL
  5. ZOLADEX (GOSERELIN) [Concomitant]
  6. FINASTERIDE (FINASTERIDE) [Concomitant]
     Active Substance: FINASTERIDE
  7. PARACETAMOL (PARACETAMOL) [Concomitant]
     Active Substance: ACETAMINOPHEN
  8. BISOPROLOL (BISOPROLOL) [Concomitant]
     Active Substance: BISOPROLOL
  9. SIMVASTATIN (SIMVASTATIN) [Concomitant]
     Active Substance: SIMVASTATIN
  10. TAMSULOSIN (TAMSULOSIN) [Concomitant]
     Active Substance: TAMSULOSIN

REACTIONS (1)
  - Subdural haematoma [None]

NARRATIVE: CASE EVENT DATE: 20110411
